FAERS Safety Report 8571024-8 (Version None)
Quarter: 2012Q3

REPORT INFORMATION
  Report Type: 
  Country: None (occurrence: None)
  Receive Date: 20120806
  Receipt Date: 20120731
  Transmission Date: 20120928
  Serious: Yes (Hospitalization)
  Sender: FDA-Public Use
  Company Number: FR-SP-2012-05490

PATIENT
  Sex: Male

DRUGS (3)
  1. IMMUCYST [Suspect]
     Indication: BLADDER CANCER
     Route: 043
     Dates: end: 20120127
  2. EFFEXOR LP (VENLAFAXINE) [Concomitant]
     Indication: DEPRESSION
     Route: 048
  3. ATACAND [Concomitant]
     Indication: HYPERTENSION
     Route: 048

REACTIONS (18)
  - ASTHENIA [None]
  - CYTOLYTIC HEPATITIS [None]
  - THROMBOCYTOPENIA [None]
  - VOMITING [None]
  - MALAISE [None]
  - PYREXIA [None]
  - RENAL FAILURE ACUTE [None]
  - JAUNDICE [None]
  - HISTIOCYTOSIS HAEMATOPHAGIC [None]
  - GASTRIC ULCER [None]
  - CHOLESTASIS [None]
  - HYPERHIDROSIS [None]
  - BOVINE TUBERCULOSIS [None]
  - LOWER GASTROINTESTINAL HAEMORRHAGE [None]
  - INFLAMMATION [None]
  - OESOPHAGITIS ULCERATIVE [None]
  - MELAENA [None]
  - RECTAL HAEMORRHAGE [None]
